FAERS Safety Report 5983803-1 (Version None)
Quarter: 2008Q4

REPORT INFORMATION
  Report Type: 
  Country: None (occurrence: None)
  Receive Date: 20081208
  Receipt Date: 20081203
  Transmission Date: 20090506
  Serious: Yes (Hospitalization)
  Sender: FDA-Public Use
  Company Number: US-ASTRAZENECA-2008UW15389

PATIENT
  Age: 54 Year
  Sex: Female
  Weight: 45.4 kg

DRUGS (3)
  1. SYMBICORT [Suspect]
     Indication: DYSPNOEA
     Dosage: 160/4.5 MCG, TWO PUFFS DAILY
     Route: 055
     Dates: start: 20070501, end: 20080801
  2. PROMETHAZINE [Concomitant]
  3. ACID PILLS [Concomitant]

REACTIONS (8)
  - ABDOMINAL PAIN UPPER [None]
  - ANOREXIA [None]
  - CANDIDIASIS [None]
  - DEHYDRATION [None]
  - MALAISE [None]
  - OESOPHAGEAL INFECTION [None]
  - VOMITING [None]
  - WEIGHT DECREASED [None]
